FAERS Safety Report 8575432-0 (Version None)
Quarter: 2012Q3

REPORT INFORMATION
  Report Type: 
  Country: None (occurrence: None)
  Receive Date: 20120807
  Receipt Date: 20120730
  Transmission Date: 20120928
  Serious: Yes (Hospitalization)
  Sender: FDA-Public Use
  Company Number: DE-MERCK-1208DEU000601

PATIENT

DRUGS (2)
  1. SYCREST [Suspect]
     Indication: BIPOLAR I DISORDER
     Dosage: UNK
     Route: 060
     Dates: end: 20120127
  2. SYCREST [Suspect]
     Indication: PSYCHOTIC DISORDER

REACTIONS (1)
  - HOSPITALISATION [None]
